FAERS Safety Report 9423778 (Version 1)
Quarter: 2013Q3

REPORT INFORMATION
  Report Type: Spontaneous
  Country: US (occurrence: US)
  Receive Date: 20130728
  Receipt Date: 20130728
  Transmission Date: 20140515
  Serious: No
  Sender: FDA-Public Use
  Company Number: US-009507513-1307USA014633

PATIENT
  Sex: Female

DRUGS (1)
  1. COSOPT PF [Suspect]
     Dosage: 2 GTT, BID
     Route: 047
     Dates: start: 2013

REACTIONS (3)
  - Accidental exposure to product [Unknown]
  - Product quality issue [Unknown]
  - No adverse event [Unknown]
